FAERS Safety Report 24215742 (Version 1)
Quarter: 2024Q3

REPORT INFORMATION
  Report Type: Spontaneous
  Country: IN (occurrence: IN)
  Receive Date: 20240816
  Receipt Date: 20240816
  Transmission Date: 20241017
  Serious: Yes (Death)
  Sender: AMGEN
  Company Number: IN-AMGEN-INDSP2024160350

PATIENT
  Age: 5 Year

DRUGS (3)
  1. BLINATUMOMAB [Suspect]
     Active Substance: BLINATUMOMAB
     Indication: B-cell type acute leukaemia
     Dosage: 5 MICROGRAM/SQ. METER, QD
     Route: 042
  2. BLINATUMOMAB [Suspect]
     Active Substance: BLINATUMOMAB
     Dosage: 15 MICROGRAM/SQ. METER, QD
     Route: 042
  3. INOTUZUMAB OZOGAMICIN [Concomitant]
     Active Substance: INOTUZUMAB OZOGAMICIN
     Indication: B-cell type acute leukaemia
     Dosage: 1.8 MILLIGRAM/SQ. METER OVER LH ON DAYS 1, 8, AND 15 OF 28-DAY CYCLE
     Route: 042

REACTIONS (1)
  - Acute lymphocytic leukaemia recurrent [Fatal]
